FAERS Safety Report 4413384-5 (Version None)
Quarter: 2004Q3

REPORT INFORMATION
  Report Type: 
  Country: None (occurrence: None)
  Receive Date: 20040728
  Receipt Date: 20040712
  Transmission Date: 20050211
  Serious: Yes (Other)
  Sender: FDA-Public Use
  Company Number: 2004221745FR

PATIENT
  Sex: Male

DRUGS (3)
  1. XALATAN [Suspect]
     Indication: GLAUCOMA
     Dosage: OPHTHALMIC
     Route: 047
  2. XALACOM (LATANOPROST, TIMOLOL) SOLUTION, STERILE [Suspect]
  3. PROSTAGLANDINS () [Suspect]

REACTIONS (4)
  - CATARACT [None]
  - CONDITION AGGRAVATED [None]
  - GLAUCOMA [None]
  - IRIS DISORDER [None]
